FAERS Safety Report 5278943-9 (Version None)
Quarter: 2007Q1

REPORT INFORMATION
  Report Type: 
  Country: None (occurrence: None)
  Receive Date: 20070328
  Receipt Date: 20070316
  Transmission Date: 20070707
  Serious: Yes (Other)
  Sender: FDA-Public Use
  Company Number: GB-ROCHE-489001

PATIENT
  Age: 58 Year
  Sex: Female
  Weight: 138.4 kg

DRUGS (1)
  1. XENICAL [Suspect]
     Indication: OBESITY
     Route: 048
     Dates: start: 20070211, end: 20070302

REACTIONS (1)
  - HEART RATE IRREGULAR [None]
